FAERS Safety Report 9160147 (Version 1)
Quarter: 2013Q1

REPORT INFORMATION
  Report Type: Spontaneous
  Country: KR (occurrence: None)
  Receive Date: 20130219
  Receipt Date: 20130219
  Transmission Date: 20140127
  Serious: Yes (Hospitalization, Other)
  Sender: FDA-Public Use
  Company Number: 2013P1002172

PATIENT
  Age: 42 Year
  Sex: Male

DRUGS (3)
  1. RIFAMPIN [Suspect]
     Indication: PULMONARY TUBERCULOSIS
  2. ISONIAZID [Concomitant]
  3. ETHAMBUTOL [Concomitant]

REACTIONS (7)
  - Tubulointerstitial nephritis [None]
  - Fanconi syndrome [None]
  - Paralysis [None]
  - Hypokalaemia [None]
  - Metabolic acidosis [None]
  - Renal tubular acidosis [None]
  - IgA nephropathy [None]
